FAERS Safety Report 18358737 (Version 1)
Quarter: 2020Q4

REPORT INFORMATION
  Report Type: Spontaneous
  Country: US (occurrence: US)
  Receive Date: 20201008
  Receipt Date: 20201008
  Transmission Date: 20210114
  Serious: Yes (Other)
  Sender: FDA-Public Use
  Company Number: US-SA-2020SA273422

PATIENT

DRUGS (10)
  1. IMDUR [Concomitant]
     Active Substance: ISOSORBIDE MONONITRATE
  2. AVALIDE [Concomitant]
     Active Substance: HYDROCHLOROTHIAZIDE\IRBESARTAN
  3. CARVEDILOL. [Concomitant]
     Active Substance: CARVEDILOL
  4. ALLEGRA [Concomitant]
     Active Substance: FEXOFENADINE HYDROCHLORIDE
     Indication: HYPERSENSITIVITY
     Dosage: 1 DF, QD
  5. ALPRAZOLAM. [Concomitant]
     Active Substance: ALPRAZOLAM
  6. ECOTRIN [Concomitant]
     Active Substance: ASPIRIN
  7. ZETIA [Concomitant]
     Active Substance: EZETIMIBE
  8. PLAVIX [Suspect]
     Active Substance: CLOPIDOGREL BISULFATE
     Indication: CAROTID ARTERY OCCLUSION
     Dosage: UNK UNK, QD
     Dates: start: 20171017
  9. CRESTOR [Concomitant]
     Active Substance: ROSUVASTATIN CALCIUM
  10. PANTOPRAZOLE [Concomitant]
     Active Substance: PANTOPRAZOLE

REACTIONS (4)
  - Cardiac disorder [Unknown]
  - Off label use [Unknown]
  - Osteogenesis imperfecta [Unknown]
  - Spinal cord disorder [Unknown]
